FAERS Safety Report 16725761 (Version 1)
Quarter: 2019Q3

REPORT INFORMATION
  Report Type: Report from Study
  Country: US (occurrence: US)
  Receive Date: 20190821
  Receipt Date: 20190821
  Transmission Date: 20191005
  Serious: Yes (Hospitalization)
  Sender: FDA-Public Use
  Company Number: US-EISAI MEDICAL RESEARCH-EC-2019-053835

PATIENT
  Age: 65 Year
  Sex: Male
  Weight: 86 kg

DRUGS (3)
  1. LENVIMA [Suspect]
     Active Substance: LENVATINIB
     Route: 048
     Dates: start: 2019, end: 20190722
  2. LENVIMA [Suspect]
     Active Substance: LENVATINIB
     Route: 048
     Dates: start: 20190726
  3. LENVIMA [Suspect]
     Active Substance: LENVATINIB
     Indication: HEPATOCELLULAR CARCINOMA
     Route: 048
     Dates: start: 2019, end: 20190314

REACTIONS (12)
  - Epistaxis [Unknown]
  - Contusion [Unknown]
  - Abdominal pain [Unknown]
  - Yellow skin [Unknown]
  - Balance disorder [Unknown]
  - Constipation [Unknown]
  - Tooth disorder [Unknown]
  - Fatigue [Unknown]
  - Headache [Unknown]
  - Pruritus [Unknown]
  - Haematemesis [Recovered/Resolved]
  - Blood pressure increased [Unknown]

NARRATIVE: CASE EVENT DATE: 2019
